FAERS Safety Report 5281916-3 (Version None)
Quarter: 2007Q1

REPORT INFORMATION
  Report Type: 
  Country: None (occurrence: None)
  Receive Date: 20070330
  Receipt Date: 20070321
  Transmission Date: 20070707
  Serious: Yes (Hospitalization)
  Sender: FDA-Public Use
  Company Number: US-JNJFOC-20070305343

PATIENT
  Sex: Female
  Weight: 104.78 kg

DRUGS (9)
  1. DURAGESIC-100 [Suspect]
     Route: 062
  2. DURAGESIC-100 [Suspect]
     Route: 062
  3. DURAGESIC-100 [Suspect]
     Route: 062
  4. DURAGESIC-100 [Suspect]
     Route: 062
  5. DURAGESIC-100 [Suspect]
     Indication: PAIN
     Route: 062
  6. GLUCOPHAGE [Concomitant]
     Indication: DIABETES MELLITUS
     Route: 048
  7. TOPRIL XL [Concomitant]
     Indication: BLOOD PRESSURE
     Route: 048
  8. KLONOPIN [Concomitant]
     Indication: PANIC ATTACK
     Route: 048
  9. PREVACID [Concomitant]
     Indication: GASTROOESOPHAGEAL REFLUX DISEASE
     Route: 048

REACTIONS (8)
  - BLOOD CHOLESTEROL INCREASED [None]
  - CHEST PAIN [None]
  - DIARRHOEA [None]
  - DRUG INEFFECTIVE [None]
  - HEART RATE DECREASED [None]
  - IMPAIRED GASTRIC EMPTYING [None]
  - TACHYCARDIA [None]
  - VOMITING [None]
